FAERS Safety Report 9648384 (Version 2)
Quarter: 2013Q4

REPORT INFORMATION
  Report Type: Spontaneous
  Country: US (occurrence: US)
  Receive Date: 20131028
  Receipt Date: 20131028
  Transmission Date: 20140711
  Serious: No
  Sender: FDA-Public Use
  Company Number: US-PFIZER INC-2013099790

PATIENT
  Age: 87 Year
  Sex: Male

DRUGS (3)
  1. LYRICA [Suspect]
     Dosage: 75 MG CAPSULE, 2 CAPSULES ORALLY TWICE A DAY
     Route: 048
  2. LORAZEPAM [Concomitant]
     Dosage: 1 MG, EVERY 4 HRS
     Route: 048
  3. TRIAMCINOLONE ACETONIDE [Concomitant]
     Dosage: 0.1 %, 2X/DAY

REACTIONS (1)
  - Pain [Unknown]
